FAERS Safety Report 14391856 (Version 2)
Quarter: 2021Q3

REPORT INFORMATION
  Report Type: Spontaneous
  Country: US (occurrence: US)
  Receive Date: 20180116
  Receipt Date: 20210928
  Transmission Date: 20211014
  Serious: Yes (Hospitalization, Disabling, Other)
  Sender: FDA-Public Use
  Company Number: US-TEVA-2018-US-846439

PATIENT
  Age: 66 Year
  Sex: Female
  Weight: 158.7 kg

DRUGS (9)
  1. DOCETAXEL SANDOZ [Suspect]
     Active Substance: DOCETAXEL
     Indication: BREAST CANCER FEMALE
     Dosage: DOSE: 80 MG/8 ML 6 CYCLES WITH FREQUENCY EVERY 3 WEEKS
     Route: 065
     Dates: start: 20150102, end: 20150420
  2. NEULASTA [Concomitant]
     Active Substance: PEGFILGRASTIM
     Indication: BREAST CANCER FEMALE
     Dosage: DOSE: 6 MG
     Route: 065
     Dates: start: 20150102, end: 20150420
  3. DOCETAXEL SANOFI [Suspect]
     Active Substance: DOCETAXEL
     Indication: BREAST CANCER FEMALE
     Dosage: DOSE: 20 MG/1 ML (1 ML) 6 CYCLES WITH FREQUENCY EVERY 3 WEEKS
     Route: 065
     Dates: start: 20150102, end: 20150420
  4. DOCETAXEL HOSPIRA [Suspect]
     Active Substance: DOCETAXEL
     Indication: BREAST CANCER FEMALE
     Dosage: DOSE: 80 MG/8 ML, 6 CYCLES WITH FREQUENCY EVERY 3 WEEKS
     Route: 065
     Dates: start: 20150102, end: 20150420
  5. HERCEPTIN [Suspect]
     Active Substance: TRASTUZUMAB
     Indication: BREAST CANCER FEMALE
     Route: 065
     Dates: start: 20150102, end: 20150420
  6. DOCETAXEL SAGENT [Suspect]
     Active Substance: DOCETAXEL
     Indication: BREAST CANCER FEMALE
     Dosage: DOSE: 20 MG/1 ML, 6 CYCLES WITH FREQUENCY EVERY 3 WEEKS
     Route: 065
     Dates: start: 20150102, end: 20150420
  7. ATENOLOL. [Concomitant]
     Active Substance: ATENOLOL
     Route: 065
     Dates: start: 2008
  8. CARBOPLATIN. [Suspect]
     Active Substance: CARBOPLATIN
     Indication: BREAST CANCER FEMALE
     Route: 065
     Dates: start: 20150102, end: 20150420
  9. TRIAMTERENE. [Concomitant]
     Active Substance: TRIAMTERENE
     Route: 065
     Dates: start: 2008

REACTIONS (20)
  - Neuropathy peripheral [Recovering/Resolving]
  - Myalgia [Unknown]
  - Neutropenia [Recovered/Resolved]
  - Nausea [Unknown]
  - Decreased appetite [Recovering/Resolving]
  - Alopecia areata [Not Recovered/Not Resolved]
  - Renal failure [Recovered/Resolved]
  - Chest pain [Unknown]
  - Onychoclasis [Recovering/Resolving]
  - Paraesthesia [Unknown]
  - Hair texture abnormal [Not Recovered/Not Resolved]
  - Vomiting [Unknown]
  - Diarrhoea [Unknown]
  - Hypoaesthesia [Unknown]
  - Loss of consciousness [Unknown]
  - Hair colour changes [Not Recovered/Not Resolved]
  - Madarosis [Not Recovered/Not Resolved]
  - Fluid retention [Unknown]
  - Cancer fatigue [Unknown]
  - Nail discolouration [Recovering/Resolving]

NARRATIVE: CASE EVENT DATE: 2015
